FAERS Safety Report 14061880 (Version 3)
Quarter: 2018Q4

REPORT INFORMATION
  Report Type: Report from Study
  Country: JP (occurrence: JP)
  Receive Date: 20171009
  Receipt Date: 20181011
  Transmission Date: 20190204
  Serious: Yes (Other)
  Sender: FDA-Public Use
  Company Number: JP-VIFOR (INTERNATIONAL) INC.-VIT-2017-10279

PATIENT
  Age: 61 Year
  Sex: Male
  Weight: 80.7 kg

DRUGS (14)
  1. CALTAN [Concomitant]
     Active Substance: CALCIUM CARBONATE
  2. ALLEGRA [Concomitant]
     Active Substance: FEXOFENADINE HYDROCHLORIDE
  3. REGPARA [Concomitant]
     Active Substance: CINACALCET HYDROCHLORIDE
  4. OXAROL [Concomitant]
     Active Substance: MAXACALCITOL
  5. NEXIUM [Concomitant]
     Active Substance: ESOMEPRAZOLE MAGNESIUM
     Route: 048
  6. LYRICA [Concomitant]
     Active Substance: PREGABALIN
  7. LOXONIN [Concomitant]
     Active Substance: LOXOPROFEN SODIUM
  8. FOSRENOL [Concomitant]
     Active Substance: LANTHANUM CARBONATE
  9. NESP [Concomitant]
     Active Substance: DARBEPOETIN ALFA
     Dates: end: 20170220
  10. VELPHORO [Suspect]
     Active Substance: FERRIC OXYHYDROXIDE
     Indication: HYPERPHOSPHATAEMIA
     Route: 048
     Dates: start: 20170116, end: 20170409
  11. TRAMAL OD [Concomitant]
     Active Substance: TRAMADOL
  12. BAYASPIRIN [Concomitant]
     Active Substance: ASPIRIN
  13. SELOKEN [Concomitant]
     Active Substance: METOPROLOL
     Route: 048
  14. MUCOSTA [Concomitant]
     Active Substance: REBAMIPIDE

REACTIONS (3)
  - Haematocrit increased [Recovered/Resolved]
  - Haemoglobin increased [Recovered/Resolved]
  - C-reactive protein increased [Recovered/Resolved]

NARRATIVE: CASE EVENT DATE: 20170220
